FAERS Safety Report 20042100 (Version 3)
Quarter: 2021Q4

REPORT INFORMATION
  Report Type: Spontaneous
  Country: US (occurrence: US)
  Receive Date: 20211108
  Receipt Date: 20211126
  Transmission Date: 20220303
  Serious: Yes (Other)
  Sender: FDA-Public Use
  Company Number: US-BAUSCH-BL-2021-036172

PATIENT
  Age: 61 Year
  Sex: Female

DRUGS (6)
  1. GLUMETZA [Suspect]
     Active Substance: METFORMIN HYDROCHLORIDE
     Indication: Type 2 diabetes mellitus
     Dosage: ONCE DAILY WITH BREAKFAST
     Route: 048
     Dates: start: 2015
  2. GLUMETZA [Suspect]
     Active Substance: METFORMIN HYDROCHLORIDE
     Route: 048
  3. GLUMETZA [Suspect]
     Active Substance: METFORMIN HYDROCHLORIDE
     Route: 048
  4. GLUMETZA [Suspect]
     Active Substance: METFORMIN HYDROCHLORIDE
     Dosage: GLUMETZA DOSE WAS THEN LOWERED TO 1000 MG ONCE DAILY, CONTINUED TO TAKE
     Route: 048
  5. CLONAZEPAM [Concomitant]
     Active Substance: CLONAZEPAM
     Indication: Anxiety
     Route: 048
  6. KETAMINE [Concomitant]
     Active Substance: KETAMINE
     Indication: Depression
     Route: 048

REACTIONS (4)
  - Hypoglycaemia [Recovered/Resolved]
  - Blood cholesterol increased [Recovered/Resolved]
  - Product residue present [Recovered/Resolved]
  - Product administration error [Unknown]

NARRATIVE: CASE EVENT DATE: 20210101
